FAERS Safety Report 9865718 (Version 2)
Quarter: 2014Q1

REPORT INFORMATION
  Report Type: Report from Study
  Country: FR (occurrence: FR)
  Receive Date: 20140203
  Receipt Date: 20140203
  Transmission Date: 20141002
  Serious: Yes (Hospitalization)
  Sender: FDA-Public Use
  Company Number: PHHO2013FR014342

PATIENT
  Sex: 0

DRUGS (5)
  1. CERTICAN [Suspect]
     Indication: RENAL TRANSPLANT
     Dosage: 4 MG, BID
     Dates: start: 20130124
  2. CERTICAN [Suspect]
     Dosage: 1.75 MG, BID
     Dates: start: 20131031
  3. NEORAL [Suspect]
     Indication: RENAL TRANSPLANT
     Dosage: UNK
     Dates: start: 20121017
  4. MYFORTIC [Suspect]
     Indication: RENAL TRANSPLANT
     Dosage: 1440 MG, UNK
     Dates: start: 20121017
  5. ADVAGRAF [Suspect]
     Indication: RENAL TRANSPLANT
     Dosage: 7 MG, UNK
     Dates: start: 20131109

REACTIONS (1)
  - Kidney transplant rejection [Not Recovered/Not Resolved]
